FAERS Safety Report 5123162-X (Version None)
Quarter: 2006Q4

REPORT INFORMATION
  Report Type: 
  Country: None (occurrence: None)
  Receive Date: 20061005
  Receipt Date: 20060922
  Transmission Date: 20070319
  Serious: Yes (Hospitalization)
  Sender: FDA-Public Use
  Company Number: 2006051115

PATIENT
  Age: 53 Year
  Sex: Female

DRUGS (9)
  1. NEURONTIN [Suspect]
     Indication: FIBROMYALGIA
     Dosage: 1800 MG (600 MG, 3 IN 1D)
     Dates: start: 19990801, end: 20021101
  2. NEURONTIN [Suspect]
     Indication: PAIN
     Dosage: 1800 MG (600 MG, 3 IN 1D)
     Dates: start: 19990801, end: 20021101
  3. NEURONTIN [Suspect]
     Indication: FIBROMYALGIA
     Dosage: 1800 MG (600 MG, 3 IN 1D)
     Dates: end: 20021101
  4. NEURONTIN [Suspect]
     Indication: PAIN
     Dosage: 1800 MG (600 MG, 3 IN 1D)
     Dates: end: 20021101
  5. KLONOPIN [Concomitant]
  6. LUVOX [Concomitant]
  7. PROZAC [Concomitant]
  8. SEROQUEL [Concomitant]
  9. ALL OTHER THERAPEUTIC PRODUCTS (ALL OTHER THERAPEUTIC PRODUCTS) [Concomitant]

REACTIONS (18)
  - ARTHRALGIA [None]
  - BACK PAIN [None]
  - BIPOLAR DISORDER [None]
  - DELUSION [None]
  - DEPRESSION [None]
  - DRUG INEFFECTIVE [None]
  - FAMILY STRESS [None]
  - FEAR [None]
  - IMPAIRED WORK ABILITY [None]
  - INTENTIONAL OVERDOSE [None]
  - PARANOIA [None]
  - PERSONALITY DISORDER [None]
  - PSYCHOTIC DISORDER [None]
  - REFUSAL OF TREATMENT BY PATIENT [None]
  - ROAD TRAFFIC ACCIDENT [None]
  - SCHIZOPHRENIA, PARANOID TYPE [None]
  - SUICIDAL IDEATION [None]
  - SUICIDE ATTEMPT [None]
